FAERS Safety Report 15074620 (Version 1)
Quarter: 2018Q2

REPORT INFORMATION
  Report Type: Spontaneous
  Country: US (occurrence: US)
  Receive Date: 20180606
  Receipt Date: 20180606
  Transmission Date: 20180711
  Serious: Yes (Hospitalization)
  Sender: FDA-Public Use
  Company Number: None

PATIENT
  Age: 59 Year
  Sex: Male
  Weight: 89.2 kg

DRUGS (11)
  1. OMEPRAZOLE. [Concomitant]
     Active Substance: OMEPRAZOLE
  2. NICOTINE. [Concomitant]
     Active Substance: NICOTINE
  3. ZEPATIER [Suspect]
     Active Substance: ELBASVIR\GRAZOPREVIR
     Indication: HEPATITIS C
     Route: 048
     Dates: start: 20170708, end: 20171025
  4. RIBAVIRIN 200 MG VARIOUS [Suspect]
     Active Substance: RIBAVIRIN
     Indication: HEPATITIS C
     Route: 048
     Dates: start: 20170708, end: 20171025
  5. LISINOPRIL. [Concomitant]
     Active Substance: LISINOPRIL
  6. METFORMIN [Concomitant]
     Active Substance: METFORMIN HYDROCHLORIDE
  7. TRAZODONE [Concomitant]
     Active Substance: TRAZODONE HYDROCHLORIDE
  8. GABAPENTIN. [Concomitant]
     Active Substance: GABAPENTIN
  9. CLINDAMYCIN. [Concomitant]
     Active Substance: CLINDAMYCIN
  10. DOXYCYCLINE. [Concomitant]
     Active Substance: DOXYCYCLINE
  11. TRAMADOL. [Concomitant]
     Active Substance: TRAMADOL

REACTIONS (4)
  - Chest pain [None]
  - Pulmonary mass [None]
  - Large cell lung cancer [None]
  - Bronchitis [None]

NARRATIVE: CASE EVENT DATE: 20170905
